FAERS Safety Report 7110289-6 (Version None)
Quarter: 2010Q4

REPORT INFORMATION
  Report Type: 
  Country: None (occurrence: None)
  Receive Date: 20101112
  Receipt Date: 20101027
  Transmission Date: 20110411
  Serious: Yes (Hospitalization)
  Sender: FDA-Public Use
  Company Number: 1-17240579

PATIENT
  Age: 53 Year
  Sex: Female
  Weight: 89.8122 kg

DRUGS (13)
  1. QUALAQUIN [Suspect]
     Indication: MUSCLE SPASMS
     Dosage: ORAL
     Route: 048
     Dates: start: 20070701, end: 20080101
  2. DIOVAN [Concomitant]
  3. LEVOTHROID [Concomitant]
  4. ZYRTEC [Concomitant]
  5. MOBIC [Concomitant]
  6. ULTRAM [Concomitant]
  7. MIRALAX [Concomitant]
  8. ASTELIN [Concomitant]
  9. ^OSTEOPENIA MED^(UNSPECIFIED) [Concomitant]
  10. MULTI-VITAMIN [Concomitant]
  11. CALCIUM [Concomitant]
  12. VITAMIN D [Concomitant]
  13. MENOPAUSE HERBS [Concomitant]

REACTIONS (8)
  - ANXIETY [None]
  - DRUG HYPERSENSITIVITY [None]
  - FEAR [None]
  - GRIEF REACTION [None]
  - IDIOPATHIC THROMBOCYTOPENIC PURPURA [None]
  - NERVOUSNESS [None]
  - PAIN [None]
  - UNEVALUABLE EVENT [None]
